FAERS Safety Report 7296738-1 (Version None)
Quarter: 2011Q1

REPORT INFORMATION
  Report Type: 
  Country: None (occurrence: None)
  Receive Date: 20110216
  Receipt Date: 20110214
  Transmission Date: 20110831
  Serious: Yes (Hospitalization, Congenital Anomaly)
  Sender: FDA-Public Use
  Company Number: A0699225A

PATIENT
  Sex: Male
  Weight: 3.6 kg

DRUGS (4)
  1. PRENATAL VITAMINS [Concomitant]
  2. PAXIL [Suspect]
     Indication: ANXIETY
     Dosage: 20MG PER DAY
     Route: 064
  3. PAXIL CR [Suspect]
     Indication: ANXIETY
     Route: 064
  4. KLONOPIN [Concomitant]
     Route: 064

REACTIONS (5)
  - TRANSPOSITION OF THE GREAT VESSELS [None]
  - CONGENITAL PULMONARY ARTERY ANOMALY [None]
  - ATRIAL SEPTAL DEFECT [None]
  - DRUG EXPOSURE DURING PREGNANCY [None]
  - ARTERIAL DISORDER [None]
